FAERS Safety Report 4745295-X (Version None)
Quarter: 2005Q3

REPORT INFORMATION
  Report Type: 
  Country: None (occurrence: None)
  Receive Date: 20050812
  Receipt Date: 20050428
  Transmission Date: 20060218
  Serious: Yes (Hospitalization)
  Sender: FDA-Public Use
  Company Number: 2005111351

PATIENT
  Sex: Female

DRUGS (7)
  1. VIAGRA [Suspect]
     Indication: PULMONARY HYPERTENSION
     Dosage: 75 MG (25 MG, 3 IN 1 D),  ORAL
     Route: 048
     Dates: start: 20040601
  2. PHENYTOIN [Concomitant]
  3. AMLODIPINE [Concomitant]
  4. FUROSEMIDE [Concomitant]
  5. PRAVACHOL [Concomitant]
  6. VITAMIN C (VITAMIN C) [Concomitant]
  7. POTASSIUM CHLORIDE [Concomitant]

REACTIONS (2)
  - INTENTIONAL MISUSE [None]
  - VIRAL INFECTION [None]
